FAERS Safety Report 20203327 (Version 1)
Quarter: 2021Q4

REPORT INFORMATION
  Report Type: Spontaneous
  Country: GB (occurrence: GB)
  Receive Date: 20211218
  Receipt Date: 20211218
  Transmission Date: 20220304
  Serious: Yes (Other)
  Sender: FDA-Public Use
  Company Number: None

PATIENT
  Age: 77 Year
  Sex: Female
  Weight: 61 kg

DRUGS (9)
  1. TRAMADOL HYDROCHLORIDE [Suspect]
     Active Substance: TRAMADOL HYDROCHLORIDE
     Indication: Product used for unknown indication
     Dosage: 100 MILLIGRAM, EVERY 6 HRS
     Route: 065
     Dates: start: 20211115
  2. CHOLECALCIFEROL [Concomitant]
     Active Substance: CHOLECALCIFEROL
     Indication: Product used for unknown indication
     Route: 065
     Dates: start: 20210506
  3. FEXOFENADINE [Concomitant]
     Active Substance: FEXOFENADINE HYDROCHLORIDE
     Route: 065
     Dates: start: 20200804, end: 20210928
  4. LEVOTHYROXINE [Concomitant]
     Active Substance: LEVOTHYROXINE
     Route: 065
     Dates: start: 20180918
  5. MORPHINE SULFATE [Concomitant]
     Active Substance: MORPHINE SULFATE
     Indication: Product used for unknown indication
     Route: 065
     Dates: start: 20211115, end: 20211129
  6. NITROFURANTOIN [Concomitant]
     Active Substance: NITROFURANTOIN
     Indication: Product used for unknown indication
     Route: 065
     Dates: start: 20211007, end: 20211010
  7. PROLIA [Concomitant]
     Active Substance: DENOSUMAB
     Dosage: INJECTION
     Route: 065
     Dates: start: 20210917
  8. RABEPRAZOLE [Concomitant]
     Active Substance: RABEPRAZOLE
     Route: 065
     Dates: start: 20180918
  9. TRIMETHOPRIM [Concomitant]
     Active Substance: TRIMETHOPRIM
     Route: 065
     Dates: start: 20211014, end: 20211021

REACTIONS (2)
  - Chest pain [Recovered/Resolved]
  - Feeling abnormal [Unknown]

NARRATIVE: CASE EVENT DATE: 20211207
